FAERS Safety Report 11322167 (Version 2)
Quarter: 2015Q3

REPORT INFORMATION
  Report Type: Spontaneous
  Country: IE (occurrence: IE)
  Receive Date: 20150729
  Receipt Date: 20150731
  Transmission Date: 20151125
  Serious: Yes (Other)
  Sender: FDA-Public Use
  Company Number: IE-BAUSCH-BL-2015-018212

PATIENT
  Age: 71 Year
  Sex: Male

DRUGS (1)
  1. FLUOROURACIL. [Suspect]
     Active Substance: FLUOROURACIL
     Indication: COLON CANCER
     Route: 065

REACTIONS (3)
  - Skin plaque [Unknown]
  - Lymphocytic infiltration [Unknown]
  - Subacute cutaneous lupus erythematosus [Unknown]
